FAERS Safety Report 4389098-7 (Version None)
Quarter: 2004Q2

REPORT INFORMATION
  Report Type: 
  Country: None (occurrence: None)
  Receive Date: 20040624
  Receipt Date: 20040620
  Transmission Date: 20050107
  Serious: Yes (Death)
  Sender: FDA-Public Use
  Company Number: 2004050004

PATIENT
  Sex: Female

DRUGS (2)
  1. CARISOPRODOL [Suspect]
     Dosage: PO
     Route: 048
     Dates: start: 20030101
  2. HYDROCODONE TABLETS [Suspect]

REACTIONS (2)
  - DRUG ABUSER [None]
  - DRUG DEPENDENCE [None]
